FAERS Safety Report 7119731-8 (Version None)
Quarter: 2010Q4

REPORT INFORMATION
  Report Type: 
  Country: None (occurrence: None)
  Receive Date: 20101123
  Receipt Date: 20100812
  Transmission Date: 20110411
  Serious: No
  Sender: FDA-Public Use
  Company Number: US-BRISTOL-MYERS SQUIBB COMPANY-15164817

PATIENT
  Age: 49 Year
  Sex: Female

DRUGS (10)
  1. ONGLYZA [Suspect]
  2. ADVAIR DISKUS 100/50 [Concomitant]
  3. ALBUTEROL [Concomitant]
  4. PRILOSEC [Concomitant]
  5. CLARITIN [Concomitant]
  6. LISINOPRIL [Concomitant]
  7. ZOLOFT [Concomitant]
  8. FLEXERIL [Concomitant]
  9. LEVOTHROID [Concomitant]
  10. NABUMETONE [Concomitant]

REACTIONS (2)
  - UPPER RESPIRATORY TRACT INFECTION [None]
  - URINARY TRACT INFECTION [None]
